FAERS Safety Report 7699381-5 (Version None)
Quarter: 2011Q3

REPORT INFORMATION
  Report Type: 
  Country: None (occurrence: None)
  Receive Date: 20110819
  Receipt Date: 20110809
  Transmission Date: 20111222
  Serious: Yes (Hospitalization)
  Sender: FDA-Public Use
  Company Number: US-BAYER-2011-023300

PATIENT
  Age: 28 Year
  Sex: Female
  Weight: 115.65 kg

DRUGS (8)
  1. TYLENOL-500 [Concomitant]
     Dosage: UNK UNK, PRN
     Route: 048
  2. YAZ [Suspect]
     Indication: PREMENSTRUAL SYNDROME
  3. YAZ [Suspect]
     Indication: CONTRACEPTION
     Dosage: UNK
     Dates: start: 20100528, end: 20100716
  4. DROSPIRENONE AND ETHINYL ESTRADIOL [Suspect]
     Indication: PREMENSTRUAL SYNDROME
  5. TOPAMAX [Concomitant]
     Indication: HEADACHE
     Dosage: UNK
     Route: 048
     Dates: start: 20100101
  6. IBUPROFEN [Concomitant]
     Dosage: UNK UNK, PRN
     Route: 048
  7. LORTAB [Concomitant]
     Dosage: UNK
     Dates: start: 20100716
  8. DROSPIRENONE AND ETHINYL ESTRADIOL [Suspect]
     Indication: CONTRACEPTION
     Dosage: UNK
     Dates: start: 20040101

REACTIONS (2)
  - PULMONARY EMBOLISM [None]
  - DEEP VEIN THROMBOSIS [None]
